FAERS Safety Report 10470271 (Version 1)
Quarter: 2014Q3

REPORT INFORMATION
  Report Type: Spontaneous
  Country: IT (occurrence: IT)
  Receive Date: 20140923
  Receipt Date: 20140923
  Transmission Date: 20150326
  Serious: Yes (Hospitalization, Other)
  Sender: FDA-Public Use
  Company Number: IT-WATSON-2014-20283

PATIENT
  Age: 33 Year
  Sex: Male

DRUGS (1)
  1. TRIAMCINOLONE ACETONIDE (WATSON LABORATORIES) [Suspect]
     Active Substance: TRIAMCINOLONE ACETONIDE
     Indication: TENOSYNOVITIS
     Dosage: 40 MG,TWO OR THREE TIMES A DAY
     Route: 030

REACTIONS (5)
  - Cushing^s syndrome [Recovering/Resolving]
  - Injection site abscess sterile [Recovering/Resolving]
  - Secondary hypogonadism [Recovering/Resolving]
  - Intentional overdose [Unknown]
  - Secondary adrenocortical insufficiency [Recovering/Resolving]
